FAERS Safety Report 16383966 (Version 1)
Quarter: 2019Q2

REPORT INFORMATION
  Report Type: Spontaneous
  Country: US (occurrence: US)
  Receive Date: 20190429
  Receipt Date: 20190429
  Transmission Date: 20190711
  Serious: Yes (Other)
  Sender: FDA-Public Use
  Company Number: None

PATIENT
  Age: 25 Year
  Sex: Female

DRUGS (1)
  1. TEMOZOLOMIDE 140MG CAP [Suspect]
     Active Substance: TEMOZOLOMIDE
     Indication: NEOPLASM MALIGNANT
     Route: 048
     Dates: start: 201804

REACTIONS (1)
  - Weight decreased [None]

NARRATIVE: CASE EVENT DATE: 20190429
